FAERS Safety Report 6866374-7 (Version None)
Quarter: 2010Q3

REPORT INFORMATION
  Report Type: 
  Country: None (occurrence: None)
  Receive Date: 20100722
  Receipt Date: 20100720
  Transmission Date: 20110219
  Serious: Yes (Other)
  Sender: FDA-Public Use
  Company Number: US-BRISTOL-MYERS SQUIBB COMPANY-15200850

PATIENT
  Sex: Female

DRUGS (1)
  1. ERBITUX [Suspect]
     Dosage: TOTAL OF 3 TREATMENT
     Dates: start: 20100101

REACTIONS (4)
  - DYSPHAGIA [None]
  - ORAL CANDIDIASIS [None]
  - SKIN DISORDER [None]
  - WEIGHT DECREASED [None]
